FAERS Safety Report 7541459 (Version 4)
Quarter: 2012Q4

REPORT INFORMATION
  Report Type: 
  Country: US (occurrence: US)
  Receive Date: 20100815
  Receipt Date: 20121121
  Transmission Date: 20130627
  Serious: Yes (Death, Other)
  Sender: FDA-Public Use
  Company Number: US-BAYER-201030061NA

PATIENT
  Age: 81 Year
  Sex: Female
  Weight: 99.77 kg

DRUGS (16)
  1. TRASYLOL [Suspect]
     Indication: PRODUCT USED FOR UNKNOWN INDICATION
     Dosage: UNK
     Dates: start: 20000621, end: 20000621
  2. PRILOSEC [Concomitant]
     Dosage: 10 mg,every night
     Dates: start: 20000614
  3. LASIX [Concomitant]
     Dosage: 40 mg, BID
     Dates: start: 20000614
  4. DILTIAZEM [Concomitant]
     Dosage: 120 mg, QD
     Dates: start: 20000614
  5. ACETYLSALICYLIC ACID (} 100 MG) [Concomitant]
     Dosage: UNK
     Dates: start: 20000614
  6. ZESTRIL [Concomitant]
     Dosage: 5 mg, QD
     Dates: start: 20000614
  7. FORANE [Concomitant]
     Dosage: UNK
     Dates: start: 20000621, end: 20000621
  8. SUFENTA [Concomitant]
     Dosage: UNK
     Dates: start: 20000621, end: 20000621
  9. PRIMACOR [Concomitant]
     Dosage: UNK
     Dates: start: 20000621, end: 20000621
  10. DOPAMINE [Concomitant]
     Dosage: UNK
     Dates: start: 20000621, end: 20000621
  11. AMIDATE [Concomitant]
     Dosage: 0.4 ml, UNK
     Dates: start: 20000621, end: 20000621
  12. PROTAMINE [Concomitant]
     Dosage: 300
     Dates: start: 20000621, end: 20000621
  13. HEPARIN [Concomitant]
     Dosage: UNK
     Dates: start: 20000621, end: 20000621
  14. KEFZOL [Concomitant]
     Dosage: 1 g, UNK
     Dates: start: 20000621, end: 20000621
  15. VANCOMYCIN [Concomitant]
  16. FLORINEF [Concomitant]

REACTIONS (15)
  - Death [Fatal]
  - Renal injury [Not Recovered/Not Resolved]
  - Renal failure [Not Recovered/Not Resolved]
  - Renal failure [Not Recovered/Not Resolved]
  - Renal impairment [Not Recovered/Not Resolved]
  - Multi-organ failure [Unknown]
  - Anxiety [Unknown]
  - Fear [Unknown]
  - Pain [Unknown]
  - Depression [Unknown]
  - Injury [Unknown]
  - Anxiety [Unknown]
  - Emotional distress [Unknown]
  - Disability [Unknown]
  - Anhedonia [Unknown]
